FAERS Safety Report 22000126 (Version 2)
Quarter: 2023Q1

REPORT INFORMATION
  Report Type: Spontaneous
  Country: AR (occurrence: AR)
  Receive Date: 20230216
  Receipt Date: 20230221
  Transmission Date: 20230418
  Serious: Yes (Other)
  Sender: FDA-Public Use
  Company Number: AR-PFIZER INC-PV202300029280

PATIENT
  Age: 79 Year
  Sex: Male

DRUGS (1)
  1. SUTENT [Suspect]
     Active Substance: SUNITINIB MALATE
     Indication: Metastatic renal cell carcinoma
     Dosage: 50 MG, CYCLIC (DAILY, SCHEME 4/2)
     Dates: start: 20220701

REACTIONS (3)
  - Urinary tract infection [Unknown]
  - Urinary retention [Unknown]
  - Product dispensing error [Unknown]

NARRATIVE: CASE EVENT DATE: 20230201
